FAERS Safety Report 23516542 (Version 4)
Quarter: 2025Q2

REPORT INFORMATION
  Report Type: Spontaneous
  Country: JP (occurrence: JP)
  Receive Date: 20240213
  Receipt Date: 20250618
  Transmission Date: 20250716
  Serious: Yes (Hospitalization, Other)
  Sender: BAXTER
  Company Number: JP-BAXTER-2024BAX012319

PATIENT
  Age: 49 Year
  Sex: Female
  Weight: 67.3 kg

DRUGS (10)
  1. DOXIL [Suspect]
     Active Substance: DOXORUBICIN HYDROCHLORIDE
     Indication: Ovarian cancer
     Route: 065
  2. CEFTRIAXONE [Concomitant]
     Active Substance: CEFTRIAXONE
     Indication: Pneumonia bacterial
     Route: 065
  3. AZITHROMYCIN [Concomitant]
     Active Substance: AZITHROMYCIN
     Route: 065
  4. EDOXABAN [Concomitant]
     Active Substance: EDOXABAN
     Route: 065
  5. METHYLPREDNISOLONE [Concomitant]
     Active Substance: METHYLPREDNISOLONE
     Dosage: PULSE THERAPY AT 1000 MG, QD
     Route: 065
  6. PREDNISOLONE [Concomitant]
     Active Substance: PREDNISOLONE
     Dosage: MAINTENANCE THERAPY WAS INITIATED AT 60 MG, QD AND THEN TAPERED
     Route: 065
  7. IGURATIMOD [Concomitant]
     Active Substance: IGURATIMOD
     Route: 065
  8. MAGNESIUM OXIDE [Concomitant]
     Active Substance: MAGNESIUM OXIDE
     Route: 065
  9. NAPROXEN [Concomitant]
     Active Substance: NAPROXEN
     Route: 065
  10. IRSOGLADINE [Concomitant]
     Active Substance: IRSOGLADINE
     Route: 065

REACTIONS (3)
  - Pulmonary toxicity [Recovering/Resolving]
  - Dyspnoea exertional [Recovering/Resolving]
  - Cough [Recovering/Resolving]
